FAERS Safety Report 20854791 (Version 3)
Quarter: 2022Q2

REPORT INFORMATION
  Report Type: Spontaneous
  Country: JP (occurrence: JP)
  Receive Date: 20220520
  Receipt Date: 20220615
  Transmission Date: 20220721
  Serious: Yes (Death, Life-Threatening, Hospitalization)
  Sender: FDA-Public Use
  Company Number: JP-DSJP-DSJ-2022-116040

PATIENT
  Age: 67 Year
  Sex: Female
  Weight: 48.5 kg

DRUGS (9)
  1. ENHERTU [Suspect]
     Active Substance: FAM-TRASTUZUMAB DERUXTECAN-NXKI
     Indication: Invasive ductal breast carcinoma
     Dosage: 5.4 MG/KG, ONCE EVERY 3 WK
     Route: 041
     Dates: start: 20220422, end: 20220422
  2. SODIUM GUALENATE MONOHYDRATE [Concomitant]
     Active Substance: SODIUM GUALENATE MONOHYDRATE
     Indication: Osteonecrosis of jaw
     Dosage: UNK, 2-3 TIMES/DAY
     Route: 050
  3. SENNOSIDES A AND B [Concomitant]
     Active Substance: SENNOSIDES A AND B
     Indication: Constipation
     Dosage: 12 MG, AS NEEDED, AT THE CONSTIPATION
     Route: 048
  4. SODIUM FERROUS CITRATE [Concomitant]
     Active Substance: SODIUM FERROUS CITRATE
     Indication: Breast cancer
     Dosage: 50 MG, BID
     Route: 048
  5. CALCIUM CARBONATE\CHOLECALCIFEROL\MAGNESIUM CARBONATE [Concomitant]
     Active Substance: CALCIUM CARBONATE\CHOLECALCIFEROL\MAGNESIUM CARBONATE
     Indication: Breast cancer
     Dosage: 2 DF, QD
     Route: 048
  6. CALCIUM ASPARTATE [Concomitant]
     Active Substance: CALCIUM ASPARTATE
     Indication: Breast cancer
     Dosage: 200 MG, TID
     Route: 048
  7. DECADRON [Concomitant]
     Active Substance: DEXAMETHASONE
     Indication: Breast cancer
     Dosage: 4 MG, BID
     Route: 048
  8. APREPITANT [Concomitant]
     Active Substance: APREPITANT
     Indication: Breast cancer
     Dosage: 80 MG, QD
     Route: 048
  9. LOPERAMIDE HYDROCHLORIDE [Concomitant]
     Active Substance: LOPERAMIDE HYDROCHLORIDE
     Indication: Breast cancer
     Dosage: 1 MG, AS NEEDED, AT THE DIARRHOEA
     Route: 048

REACTIONS (1)
  - Pulmonary toxicity [Fatal]

NARRATIVE: CASE EVENT DATE: 20220507
